FAERS Safety Report 25401286 (Version 1)
Quarter: 2025Q2

REPORT INFORMATION
  Report Type: Spontaneous
  Country: US (occurrence: None)
  Receive Date: 20250604
  Receipt Date: 20250604
  Transmission Date: 20250716
  Serious: Yes (Other)
  Sender: FDA-CTU
  Company Number: None

PATIENT
  Age: 47 Year
  Sex: Female

DRUGS (1)
  1. DUPIXENT [Suspect]
     Active Substance: DUPILUMAB
     Dates: start: 20241101, end: 20250604

REACTIONS (3)
  - Drug ineffective [None]
  - Rash [None]
  - Melanoderma [None]

NARRATIVE: CASE EVENT DATE: 20250604
